FAERS Safety Report 12247644 (Version 2)
Quarter: 2016Q2

REPORT INFORMATION
  Report Type: Report from Study
  Country: BR (occurrence: BR)
  Receive Date: 20160408
  Receipt Date: 20160414
  Transmission Date: 20160815
  Serious: Yes (Hospitalization, Other)
  Sender: FDA-Public Use
  Company Number: BR-ABBVIE-16K-020-1597830-00

PATIENT
  Age: 44 Year
  Sex: Female
  Weight: 75 kg

DRUGS (22)
  1. VITAMIN C [Concomitant]
     Active Substance: ASCORBIC ACID
     Route: 048
     Dates: start: 2010
  2. FLUOXETINE [Concomitant]
     Active Substance: FLUOXETINE HYDROCHLORIDE
     Indication: ARTHRITIS
     Route: 048
     Dates: start: 2010
  3. 5H TRYPTOPHAN [Concomitant]
     Indication: ARTHRITIS
     Route: 048
     Dates: start: 2010
  4. LICORICE. [Concomitant]
     Active Substance: LICORICE
     Indication: ARTHRITIS
     Route: 048
     Dates: start: 2010
  5. LEVOTHYROXINE. [Concomitant]
     Active Substance: LEVOTHYROXINE
     Indication: HYPOTHYROIDISM
     Route: 048
     Dates: start: 201410
  6. SELENIUM [Concomitant]
     Active Substance: SELENIUM
     Indication: ARTHRITIS
     Route: 048
     Dates: start: 2010
  7. VITAMIN E [Concomitant]
     Active Substance: .ALPHA.-TOCOPHEROL
     Indication: ARTHRITIS
     Route: 048
     Dates: start: 2010
  8. PREDNISONE. [Concomitant]
     Active Substance: PREDNISONE
     Indication: ARTHRITIS
     Route: 048
     Dates: start: 2010
  9. AMLODIPINE [Concomitant]
     Active Substance: AMLODIPINE BESYLATE
     Indication: ARTHRITIS
     Route: 048
     Dates: start: 2010
  10. HUMIRA [Suspect]
     Active Substance: ADALIMUMAB
     Indication: RHEUMATOID ARTHRITIS
     Route: 058
     Dates: start: 20100411, end: 201511
  11. SPIRONOLACTONE. [Concomitant]
     Active Substance: SPIRONOLACTONE
     Indication: ARTHRITIS
     Route: 048
     Dates: start: 2010
  12. RAMIPRIL. [Concomitant]
     Active Substance: RAMIPRIL
     Indication: ARTHRITIS
     Route: 048
     Dates: start: 2010
  13. ATENOLOL. [Concomitant]
     Active Substance: ATENOLOL
     Indication: ARTHRITIS
     Route: 048
     Dates: start: 2010
  14. COENZYME Q10 [Concomitant]
     Active Substance: UBIDECARENONE
     Indication: ARTHRITIS
     Route: 048
     Dates: start: 2010
  15. NIMESULIDE [Concomitant]
     Active Substance: NIMESULIDE
     Indication: ARTHRITIS
     Route: 048
     Dates: start: 2010
  16. PANTOPRAZOLE [Concomitant]
     Active Substance: PANTOPRAZOLE SODIUM
     Indication: ARTHRITIS
     Route: 048
     Dates: start: 2010
  17. MELOXICAM. [Concomitant]
     Active Substance: MELOXICAM
     Indication: ARTHRITIS
     Route: 048
     Dates: start: 2010
  18. CHLOROQUINE. [Concomitant]
     Active Substance: CHLOROQUINE
     Indication: ARTHRITIS
     Route: 048
     Dates: start: 2010
  19. CYCLOBENZAPRINE [Concomitant]
     Active Substance: CYCLOBENZAPRINE
     Indication: ARTHRITIS
     Route: 048
     Dates: start: 2010
  20. VITAMIN C [Concomitant]
     Active Substance: ASCORBIC ACID
     Indication: ARTHRITIS
     Route: 048
     Dates: start: 2010
  21. ZINC CHELATE [Concomitant]
     Indication: ARTHRITIS
     Route: 048
     Dates: start: 2010
  22. VORO Q [Concomitant]
     Indication: PRODUCT USED FOR UNKNOWN INDICATION
     Route: 048
     Dates: start: 2010

REACTIONS (5)
  - Incision site haemorrhage [Recovering/Resolving]
  - Device related infection [Recovering/Resolving]
  - Post procedural infection [Recovered/Resolved]
  - Procedural pain [Recovering/Resolving]
  - Cartilage injury [Not Recovered/Not Resolved]

NARRATIVE: CASE EVENT DATE: 2016
